FAERS Safety Report 9316179 (Version 2)
Quarter: 2013Q2

REPORT INFORMATION
  Report Type: Spontaneous
  Country: CN (occurrence: CN)
  Receive Date: 20130530
  Receipt Date: 20130606
  Transmission Date: 20140414
  Serious: Yes (Other)
  Sender: FDA-Public Use
  Company Number: CN-PFIZER INC-2013163641

PATIENT
  Age: 70 Year
  Sex: Female

DRUGS (4)
  1. CORDARONE [Suspect]
     Indication: CORONARY ARTERY DISEASE
     Dosage: 0.4 G, TWICE DAILY
     Route: 048
     Dates: start: 20120425, end: 20120425
  2. RAMIPRIL [Concomitant]
     Dosage: UNK
     Dates: start: 201304, end: 20130425
  3. SPIRONOLACTONE [Concomitant]
     Dosage: UNK
     Dates: start: 201304
  4. POTASSIUM CHLORIDE [Concomitant]
     Dosage: UNK
     Dates: end: 20130425

REACTIONS (3)
  - Arrhythmia [Recovering/Resolving]
  - Hyperkalaemia [Unknown]
  - Off label use [Unknown]
